FAERS Safety Report 16692599 (Version 4)
Quarter: 2019Q3

REPORT INFORMATION
  Report Type: Spontaneous
  Country: US (occurrence: US)
  Receive Date: 20190812
  Receipt Date: 20190819
  Transmission Date: 20191004
  Serious: Yes (Other)
  Sender: FDA-Public Use
  Company Number: US-PFIZER INC-2019343770

PATIENT
  Sex: Female

DRUGS (1)
  1. HEPARIN SODIUM. [Suspect]
     Active Substance: HEPARIN SODIUM
     Indication: CARDIAC OPERATION
     Dosage: UNK
     Dates: start: 2016, end: 2018

REACTIONS (2)
  - Chronic kidney disease [Unknown]
  - Neuropathy peripheral [Unknown]
